FAERS Safety Report 7819713-4 (Version None)
Quarter: 2011Q4

REPORT INFORMATION
  Report Type: 
  Country: None (occurrence: None)
  Receive Date: 20111018
  Receipt Date: 20101126
  Transmission Date: 20120403
  Serious: No
  Sender: FDA-Public Use
  Company Number: US-ASTRAZENECA-2010SE48662

PATIENT
  Age: 49 Year
  Sex: Female

DRUGS (4)
  1. SYMBICORT [Suspect]
     Dosage: 160/4.5 ONE PUFF TWICE A DAY
     Route: 055
  2. TYLENOL-500 [Concomitant]
  3. SYMBICORT [Suspect]
     Indication: CHRONIC OBSTRUCTIVE PULMONARY DISEASE
     Dosage: 160/4.5 TWO PUFFS TWICE A DAY
     Route: 055
  4. FOLIC ACID [Concomitant]

REACTIONS (2)
  - CHEST DISCOMFORT [None]
  - INCORRECT DOSE ADMINISTERED [None]
